FAERS Safety Report 8571614-2 (Version None)
Quarter: 2012Q3

REPORT INFORMATION
  Report Type: 
  Country: None (occurrence: None)
  Receive Date: 20120806
  Receipt Date: 20120801
  Transmission Date: 20120928
  Serious: Yes (Other)
  Sender: FDA-Public Use
  Company Number: PHHY2012CA067080

PATIENT
  Sex: Female

DRUGS (1)
  1. CLOZARIL [Suspect]
     Dosage: UNK
     Dates: start: 19981012

REACTIONS (3)
  - TYPE 2 DIABETES MELLITUS [None]
  - HYPOTHYROIDISM [None]
  - DEMENTIA ALZHEIMER'S TYPE [None]
